FAERS Safety Report 4834756-0 (Version None)
Quarter: 2005Q4

REPORT INFORMATION
  Report Type: 
  Country: None (occurrence: None)
  Receive Date: 20051122
  Receipt Date: 20050919
  Transmission Date: 20060501
  Serious: No
  Sender: FDA-Public Use
  Company Number: US-BRISTOL-MYERS SQUIBB COMPANY-13115738

PATIENT
  Age: 84 Year
  Sex: Male
  Weight: 54 kg

DRUGS (5)
  1. PRAVACOL TABS 10 MG [Suspect]
     Indication: CAROTID ARTERY STENOSIS
     Dates: start: 20050701
  2. FUROSEMIDE [Concomitant]
  3. ISOSORBIDE [Concomitant]
  4. SPIRONOLACTONE [Concomitant]
  5. COZAAR [Concomitant]

REACTIONS (2)
  - SNEEZING [None]
  - TONGUE DISCOLOURATION [None]
